FAERS Safety Report 8550039-X (Version None)
Quarter: 2012Q3

REPORT INFORMATION
  Report Type: 
  Country: None (occurrence: None)
  Receive Date: 20120730
  Receipt Date: 20120720
  Transmission Date: 20120928
  Serious: Yes (Other)
  Sender: FDA-Public Use
  Company Number: US-ASTRAZENECA-2012SE10362

PATIENT
  Age: 50 Year
  Sex: Female

DRUGS (1)
  1. SEROQUEL [Suspect]
     Route: 048

REACTIONS (7)
  - DRUG DOSE OMISSION [None]
  - HYPERHIDROSIS [None]
  - THERMAL BURN [None]
  - HYPERTENSION [None]
  - INSOMNIA [None]
  - MALAISE [None]
  - MANIA [None]
